FAERS Safety Report 5153742-7 (Version None)
Quarter: 2006Q4

REPORT INFORMATION
  Report Type: 
  Country: None (occurrence: None)
  Receive Date: 20061120
  Receipt Date: 20061016
  Transmission Date: 20070319
  Serious: Yes (Death)
  Sender: FDA-Public Use
  Company Number: NO-ELI_LILLY_AND_COMPANY-NO200610003228

PATIENT
  Age: 81 Year
  Sex: Male

DRUGS (5)
  1. ZYPREXA [Suspect]
     Indication: PSYCHOTIC DISORDER
     Dosage: 10 MG, UNKNOWN
     Route: 048
     Dates: start: 20060411
  2. REMERON [Concomitant]
     Indication: DEPRESSION
     Dosage: 15 MG, DAILY (1/D)
     Dates: start: 20060228
  3. DIURAL [Concomitant]
     Indication: OEDEMA
     Dosage: 20 MG, DAILY (1/D)
     Dates: start: 20051108
  4. VITAMIN B-12 [Concomitant]
     Indication: ANAEMIA
     Dates: start: 19930101
  5. ZANTAC [Concomitant]
     Indication: DYSPEPSIA
     Dosage: 150 MG, DAILY (1/D)
     Dates: start: 20051101

REACTIONS (11)
  - ANXIETY [None]
  - C-REACTIVE PROTEIN INCREASED [None]
  - CHILLS [None]
  - COORDINATION ABNORMAL [None]
  - CYANOSIS [None]
  - DYSPNOEA [None]
  - MENTAL STATUS CHANGES [None]
  - MUSCLE RIGIDITY [None]
  - MYOCARDIAL INFARCTION [None]
  - OXYGEN SATURATION DECREASED [None]
  - SUDDEN DEATH [None]
